FAERS Safety Report 6210928-8 (Version None)
Quarter: 2009Q2

REPORT INFORMATION
  Report Type: 
  Country: None (occurrence: None)
  Receive Date: 20090601
  Receipt Date: 20090521
  Transmission Date: 20091009
  Serious: Yes (Disabling, Other)
  Sender: FDA-Public Use
  Company Number: JP-BAXTER-2009BH009052

PATIENT
  Age: 80 Year
  Sex: Female

DRUGS (4)
  1. ENDOXAN BAXTER [Suspect]
     Indication: LYMPHOMA
     Route: 041
     Dates: start: 20090501, end: 20090501
  2. VINCRISTINE SULFATE [Suspect]
     Indication: LYMPHOMA
     Route: 041
     Dates: start: 20090501, end: 20090501
  3. THERARUBICIN [Suspect]
     Indication: LYMPHOMA
     Route: 065
     Dates: start: 20090501, end: 20090501
  4. PREDNISOLONE [Suspect]
     Indication: LYMPHOMA
     Route: 065
     Dates: start: 20090501, end: 20090501

REACTIONS (2)
  - ORTHOSTATIC HYPOTENSION [None]
  - SYNCOPE [None]
